FAERS Safety Report 7957801-2 (Version None)
Quarter: 2011Q4

REPORT INFORMATION
  Report Type: 
  Country: None (occurrence: None)
  Receive Date: 20111205
  Receipt Date: 20111125
  Transmission Date: 20120403
  Serious: Yes (Hospitalization)
  Sender: FDA-Public Use
  Company Number: FR-EISAI INC-E7273-00275-SPO-FR

PATIENT
  Sex: Female

DRUGS (18)
  1. BICNU [Suspect]
     Indication: MYCOSIS FUNGOIDES
     Dosage: UNKNOWN
     Route: 042
     Dates: start: 20110301, end: 20110601
  2. FLUTICASONE PROPIONATE [Concomitant]
  3. TIOTROPIUM [Concomitant]
  4. TARGRETIN [Suspect]
     Indication: MYCOSIS FUNGOIDES
     Dosage: UNKNOWN
     Route: 048
     Dates: start: 20110101, end: 20110101
  5. CLOPIDOGREL [Concomitant]
  6. FOLIC ACID [Concomitant]
  7. ALBUTEROL SULFATE AUTOHALER [Concomitant]
  8. FER [Concomitant]
  9. BETAMETHASONE CREAM [Concomitant]
  10. DEXERYL [Concomitant]
     Route: 045
  11. ALMITRINE [Concomitant]
  12. ATORVASTATIN [Concomitant]
  13. LEVOTHYROXINE SODIUM [Concomitant]
     Route: 048
  14. LYRICA [Concomitant]
     Route: 048
     Dates: start: 20110401, end: 20111011
  15. ZOLPIDEM [Concomitant]
     Route: 048
     Dates: start: 20110601, end: 20111011
  16. TRIMEPRAZINE TAB [Concomitant]
  17. GLUCONATE DE ZINC [Concomitant]
  18. ACETAMINOPHEN [Concomitant]

REACTIONS (2)
  - ANAEMIA [None]
  - COAGULOPATHY [None]
